FAERS Safety Report 19251894 (Version 1)
Quarter: 2021Q2

REPORT INFORMATION
  Report Type: Spontaneous
  Country: US (occurrence: US)
  Receive Date: 20210513
  Receipt Date: 20210513
  Transmission Date: 20210717
  Serious: Yes (Other)
  Sender: FDA-Public Use
  Company Number: US-PFIZER INC-2021500778

PATIENT
  Age: 13 Year
  Sex: Male

DRUGS (2)
  1. BENZATHINE BENZYLPENICILLIN [Suspect]
     Active Substance: PENICILLIN G BENZATHINE
     Indication: PYREXIA
     Dosage: UNK
     Route: 030
  2. BENZATHINE BENZYLPENICILLIN [Suspect]
     Active Substance: PENICILLIN G BENZATHINE
     Indication: OROPHARYNGEAL PAIN

REACTIONS (2)
  - Embolia cutis medicamentosa [Recovering/Resolving]
  - Off label use [Unknown]
